FAERS Safety Report 13982823 (Version 1)
Quarter: 2017Q3

REPORT INFORMATION
  Report Type: Spontaneous
  Country: JP (occurrence: JP)
  Receive Date: 20170918
  Receipt Date: 20170918
  Transmission Date: 20171128
  Serious: Yes (Death)
  Sender: FDA-Public Use
  Company Number: JP-BAYER-2017-171944

PATIENT
  Sex: Female
  Weight: .34 kg

DRUGS (3)
  1. PREDNISOLONE. [Concomitant]
     Active Substance: PREDNISOLONE
     Dosage: DAILY DOSE 10 MG
     Route: 064
  2. ACETYLSALICYLIC ACID({=100 MG) [Suspect]
     Active Substance: ASPIRIN
     Dosage: DAILY DOSE 81 MG
     Route: 064
  3. DANAPAROID SODIUM [Concomitant]
     Active Substance: DANAPAROID SODIUM
     Dosage: DAILY DOSE 2500 U
     Route: 064

REACTIONS (3)
  - Foetal growth restriction [Fatal]
  - Foetal exposure during pregnancy [None]
  - Intentional product use issue [None]
